FAERS Safety Report 8176787-1 (Version None)
Quarter: 2012Q1

REPORT INFORMATION
  Report Type: 
  Country: None (occurrence: None)
  Receive Date: 20120301
  Receipt Date: 20120223
  Transmission Date: 20120608
  Serious: Yes (Hospitalization)
  Sender: FDA-Public Use
  Company Number: CA-JNJFOC-20120211893

PATIENT
  Sex: Male
  Weight: 97 kg

DRUGS (7)
  1. ENTROPHEN [Concomitant]
     Route: 065
  2. REMICADE [Suspect]
     Indication: CROHN'S DISEASE
     Dosage: 26TH INFUSION
     Route: 042
  3. ATENOLOL [Concomitant]
     Route: 065
  4. ACETAMINOPHEN [Concomitant]
     Route: 065
  5. VITAMIN B-12 [Concomitant]
     Route: 065
  6. CRESTOR [Concomitant]
     Route: 065
  7. PANTOPRAZOLE [Concomitant]
     Route: 065

REACTIONS (2)
  - HEART RATE INCREASED [None]
  - AORTIC ANEURYSM REPAIR [None]
